FAERS Safety Report 5892815-8 (Version None)
Quarter: 2008Q3

REPORT INFORMATION
  Report Type: 
  Country: None (occurrence: None)
  Receive Date: 20080923
  Receipt Date: 20080912
  Transmission Date: 20090109
  Serious: Yes (Hospitalization)
  Sender: FDA-Public Use
  Company Number: US-AMGEN-QUU307715

PATIENT
  Sex: Female

DRUGS (3)
  1. ENBREL [Suspect]
     Indication: PSORIASIS
     Route: 058
     Dates: start: 20070412
  2. ENBREL [Suspect]
     Indication: RHEUMATOID ARTHRITIS
  3. METHOTREXATE [Concomitant]
     Route: 048
     Dates: start: 20070101

REACTIONS (10)
  - ARTHRITIS [None]
  - DEAFNESS [None]
  - JOINT STIFFNESS [None]
  - MOBILITY DECREASED [None]
  - ONYCHOCLASIS [None]
  - PAIN [None]
  - PSORIASIS [None]
  - PUSTULAR PSORIASIS [None]
  - SINUS POLYP [None]
  - SINUSITIS [None]
